FAERS Safety Report 15165341 (Version 1)
Quarter: 2018Q3

REPORT INFORMATION
  Report Type: Spontaneous
  Country: SE (occurrence: SE)
  Receive Date: 20180719
  Receipt Date: 20180719
  Transmission Date: 20181010
  Serious: Yes (Other)
  Sender: FDA-Public Use
  Company Number: SE-BAYER-2018-132427

PATIENT
  Age: 45 Year
  Sex: Male
  Weight: 71.97 kg

DRUGS (1)
  1. AVELOX [Suspect]
     Active Substance: MOXIFLOXACIN HYDROCHLORIDE
     Indication: MYCOPLASMA GENITALIUM INFECTION
     Dosage: UNK

REACTIONS (7)
  - Dizziness [Unknown]
  - Vision blurred [Unknown]
  - Paraesthesia [Unknown]
  - Oedema mucosal [Unknown]
  - Erythema [Unknown]
  - Diplopia [Unknown]
  - Burning sensation [Unknown]

NARRATIVE: CASE EVENT DATE: 20180619
